FAERS Safety Report 23115006 (Version 1)
Quarter: 2023Q4

REPORT INFORMATION
  Report Type: Spontaneous
  Country: NP (occurrence: NP)
  Receive Date: 20231027
  Receipt Date: 20231027
  Transmission Date: 20240110
  Serious: Yes (Hospitalization)
  Sender: FDA-Public Use
  Company Number: NP-GLAXOSMITHKLINE-NP2023GSK147831

PATIENT

DRUGS (1)
  1. ALBUTEROL [Suspect]
     Active Substance: ALBUTEROL
     Indication: Asthma
     Dosage: UNK
     Route: 055

REACTIONS (6)
  - Dyskinesia [Recovered/Resolved]
  - Chest pain [Recovered/Resolved]
  - Wheezing [Recovered/Resolved]
  - Distractibility [Recovered/Resolved]
  - Myoclonus [Recovered/Resolved]
  - Emotional distress [Recovered/Resolved]
